FAERS Safety Report 7689592-7 (Version None)
Quarter: 2011Q3

REPORT INFORMATION
  Report Type: 
  Country: None (occurrence: None)
  Receive Date: 20110817
  Receipt Date: 20110816
  Transmission Date: 20111222
  Serious: Yes (Death, Hospitalization)
  Sender: FDA-Public Use
  Company Number: FR-PFIZER INC-2010039673

PATIENT
  Age: 49 Year
  Sex: Male
  Weight: 85 kg

DRUGS (2)
  1. EFFEXOR [Concomitant]
     Dosage: UNK
     Dates: start: 20091001
  2. SUTENT [Suspect]
     Indication: TRANSITIONAL CELL CARCINOMA
     Dosage: 50 MG, 1X/DAY
     Route: 048
     Dates: start: 20091125, end: 20100323

REACTIONS (2)
  - DEATH [None]
  - HAEMOPTYSIS [None]
